FAERS Safety Report 11009081 (Version 1)
Quarter: 2015Q2

REPORT INFORMATION
  Report Type: Spontaneous
  Country: None (occurrence: None)
  Receive Date: 20150408
  Receipt Date: 20150408
  Transmission Date: 20150821
  Serious: Yes (Other)
  Sender: FDA-Public Use
  Company Number: 2015030082

PATIENT
  Age: 9 Year
  Sex: Male
  Weight: 29.2 kg

DRUGS (2)
  1. DYMISTA [Suspect]
     Active Substance: AZELASTINE HYDROCHLORIDE\FLUTICASONE PROPIONATE
     Indication: RHINITIS ALLERGIC
     Route: 045
     Dates: start: 20150315, end: 20150315
  2. AVAMYS (FLUTICASONE FUROATE) [Concomitant]

REACTIONS (4)
  - Dry mouth [None]
  - Dysphonia [None]
  - Drug administered to patient of inappropriate age [None]
  - Somnolence [None]

NARRATIVE: CASE EVENT DATE: 20150315
